FAERS Safety Report 14301864 (Version 3)
Quarter: 2018Q1

REPORT INFORMATION
  Report Type: Report from Study
  Country: DE (occurrence: DE)
  Receive Date: 20171219
  Receipt Date: 20180201
  Transmission Date: 20180509
  Serious: Yes (Hospitalization, Disabling)
  Sender: FDA-Public Use
  Company Number: DE-BIOVITRUM-2016DE1111

PATIENT
  Age: 12 Year
  Sex: Female
  Weight: 69 kg

DRUGS (1)
  1. ORFADIN [Suspect]
     Active Substance: NITISINONE
     Indication: TYROSINAEMIA
     Dates: start: 20161121

REACTIONS (5)
  - Amino acid level decreased [Unknown]
  - Corneal erosion [Unknown]
  - Amino acid level increased [Not Recovered/Not Resolved]
  - Succinylacetone increased [Unknown]
  - Eye irritation [Not Recovered/Not Resolved]

NARRATIVE: CASE EVENT DATE: 20151105
